FAERS Safety Report 20952205 (Version 2)
Quarter: 2022Q2

REPORT INFORMATION
  Report Type: Report from Study
  Country: US (occurrence: US)
  Receive Date: 20220613
  Receipt Date: 20220624
  Transmission Date: 20220721
  Serious: Yes (Hospitalization)
  Sender: FDA-Public Use
  Company Number: US-JNJFOC-20220523800

PATIENT
  Age: 51 Year
  Sex: Female
  Weight: 59.1 kg

DRUGS (6)
  1. SELEXIPAG [Suspect]
     Active Substance: SELEXIPAG
     Indication: Pulmonary arterial hypertension
     Route: 048
     Dates: end: 202205
  2. TYVASO [Suspect]
     Active Substance: TREPROSTINIL
     Indication: Product used for unknown indication
     Route: 065
  3. REVATIO [Concomitant]
     Active Substance: SILDENAFIL CITRATE
  4. WARFARIN [Concomitant]
     Active Substance: WARFARIN
  5. AMBRISENTAN [Concomitant]
     Active Substance: AMBRISENTAN
  6. TADALAFIL [Concomitant]
     Active Substance: TADALAFIL

REACTIONS (8)
  - Pulmonary oedema [Unknown]
  - Supraventricular tachycardia [Unknown]
  - Fluid retention [Unknown]
  - Dyspnoea [Unknown]
  - Heart rate increased [Unknown]
  - Hypotension [Unknown]
  - Therapy change [Unknown]
  - Rash [Unknown]

NARRATIVE: CASE EVENT DATE: 20220506
